FAERS Safety Report 6985484-7 (Version None)
Quarter: 2010Q3

REPORT INFORMATION
  Report Type: 
  Country: None (occurrence: None)
  Receive Date: 20100915
  Receipt Date: 20100906
  Transmission Date: 20110219
  Serious: Yes (Hospitalization)
  Sender: FDA-Public Use
  Company Number: B0667763A

PATIENT
  Sex: Female

DRUGS (4)
  1. ZANTAC [Suspect]
     Indication: PROPHYLAXIS
     Dosage: 150MG PER DAY
     Route: 048
     Dates: start: 20100525, end: 20100705
  2. MERCAZOLE [Suspect]
     Indication: BASEDOW'S DISEASE
     Route: 048
     Dates: start: 20100518, end: 20100721
  3. FOSAMAC [Suspect]
     Indication: PROPHYLAXIS
     Route: 048
     Dates: start: 20100518, end: 20100721
  4. TAKEPRON [Concomitant]
     Indication: PROPHYLAXIS
     Dosage: 15MG PER DAY
     Route: 048
     Dates: start: 20100706, end: 20100721

REACTIONS (1)
  - HEPATIC ENZYME INCREASED [None]
